FAERS Safety Report 8605636-X (Version None)
Quarter: 2012Q3

REPORT INFORMATION
  Report Type: 
  Country: None (occurrence: None)
  Receive Date: 20120807
  Receipt Date: 20120730
  Transmission Date: 20120928
  Serious: Yes (Hospitalization)
  Sender: FDA-Public Use
  Company Number: GER/UKI/12/0022556

PATIENT
  Age: 43 Year
  Sex: Male
  Weight: 90 kg

DRUGS (6)
  1. OLANZAPINE [Suspect]
     Indication: SCHIZOPHRENIA, PARANOID TYPE
     Dosage: 10 MG, 1 IN 1 D, ORAL
     Route: 048
     Dates: start: 20091201, end: 20110604
  2. SERTRALINE HYDROCHLORIDE [Concomitant]
  3. DIAZEPAM [Concomitant]
  4. QUININE SULFATE [Concomitant]
  5. BROMOCRIPTINE MESYLATE [Concomitant]
  6. CO-BENELDOPA (MADOPAR) [Concomitant]

REACTIONS (8)
  - HAEMATOCRIT DECREASED [None]
  - NEUROLEPTIC MALIGNANT SYNDROME [None]
  - HYPOTENSION [None]
  - URINE OUTPUT DECREASED [None]
  - BLOOD UREA DECREASED [None]
  - ACIDOSIS [None]
  - BLOOD ZINC DECREASED [None]
  - BLOOD MAGNESIUM DECREASED [None]
